FAERS Safety Report 4491859-0 (Version None)
Quarter: 2004Q4

REPORT INFORMATION
  Report Type: 
  Country: None (occurrence: None)
  Receive Date: 20041103
  Receipt Date: 20041022
  Transmission Date: 20050328
  Serious: Yes (Hospitalization)
  Sender: FDA-Public Use
  Company Number: CH-BRISTOL-MYERS SQUIBB COMPANY-12748166

PATIENT
  Age: 40 Year
  Sex: Male

DRUGS (5)
  1. EFAVIRENZ CAPS 600 MG [Suspect]
     Indication: ASYMPTOMATIC HIV INFECTION
     Dosage: EFAVIRENZ 600 MG DAILY ORAL THERAPY CONTINUED TO PREVENT THE OCCURRENCE OF RESISTENCY
     Route: 048
     Dates: start: 20040802, end: 20040802
  2. FLUOXETINE HCL [Suspect]
     Indication: AFFECTIVE DISORDER
     Route: 048
     Dates: start: 20040802, end: 20040802
  3. TRIZIVIR [Suspect]
     Indication: ASYMPTOMATIC HIV INFECTION
     Dosage: THERAPY CONTINUED TO PREVENT THE OCCURRENCE OF RESISTENCY
     Route: 048
  4. VIREAD [Suspect]
     Indication: ASYMPTOMATIC HIV INFECTION
     Dosage: THERAPY CONTINUED TO PREVENT THE OCCURRENCE OF RESISTENCY
     Route: 048
  5. MARCOUMAR [Concomitant]
     Dosage: STARTED IN OCT-2003 AND CONTINUES
     Dates: start: 20031001

REACTIONS (8)
  - ATAXIA [None]
  - DIARRHOEA [None]
  - DIPLOPIA [None]
  - DRUG SCREEN POSITIVE [None]
  - FATIGUE [None]
  - SOMNOLENCE [None]
  - SUICIDE ATTEMPT [None]
  - VOMITING [None]
